FAERS Safety Report 10354724 (Version 1)
Quarter: 2014Q3

REPORT INFORMATION
  Report Type: Spontaneous
  Country: US (occurrence: None)
  Receive Date: 20140729
  Receipt Date: 20140729
  Transmission Date: 20150326
  Serious: No
  Sender: FDA-Public Use
  Company Number: None

PATIENT
  Age: 60 Year
  Weight: 127.01 kg

DRUGS (1)
  1. SUPREP BOWEL PREP [Suspect]
     Active Substance: MAGNESIUM SULFATE\POTASSIUM SULFATE\SODIUM SULFATE
     Indication: COLONOSCOPY
     Dosage: DRINK 2 BOTTLES AS DIRECTED 2 TIMES 6 HOURS AP TAKEN BY MOUTH
     Route: 048

REACTIONS (4)
  - Swollen tongue [None]
  - Throat irritation [None]
  - Pharyngeal oedema [None]
  - Dysphonia [None]

NARRATIVE: CASE EVENT DATE: 20140727
